FAERS Safety Report 7015642-7 (Version None)
Quarter: 2010Q3

REPORT INFORMATION
  Report Type: 
  Country: None (occurrence: None)
  Receive Date: 20100927
  Receipt Date: 20100921
  Transmission Date: 20110219
  Serious: Yes (Disabling)
  Sender: FDA-Public Use
  Company Number: US-BAYER-201020415BCC

PATIENT
  Age: 5 Year
  Sex: Male

DRUGS (4)
  1. ASPIRIN [Suspect]
     Indication: ACCIDENTAL DRUG INTAKE BY CHILD
     Dosage: INGESTED THE BOTTLE CONTENT / COUNT BOTTLE UNKNOWN
     Route: 048
     Dates: start: 19680101, end: 19680101
  2. REGLAN [Concomitant]
     Route: 065
  3. GENERIC CLARITIN [Concomitant]
  4. ONE-A-DAY VITA CRAVES [Concomitant]
     Route: 065

REACTIONS (6)
  - APHAGIA [None]
  - CHOKING [None]
  - EMOTIONAL DISORDER [None]
  - RETCHING [None]
  - SALIVA ALTERED [None]
  - VOMITING [None]
